FAERS Safety Report 5275220-7 (Version None)
Quarter: 2007Q1

REPORT INFORMATION
  Report Type: 
  Country: None (occurrence: None)
  Receive Date: 20070320
  Receipt Date: 20070312
  Transmission Date: 20070707
  Serious: Yes (Life-Threatening)
  Sender: FDA-Public Use
  Company Number: 2007-154622-NL

PATIENT
  Age: 66 Year
  Sex: Female

DRUGS (13)
  1. VECURONIUM BROMIDE [Suspect]
     Indication: ANAESTHESIA
     Dosage: 6 MG ONCE INTRAVENOUS (NOS)
     Route: 042
     Dates: start: 20000725, end: 20000725
  2. ISOFLURANE [Suspect]
     Indication: ANAESTHESIA
     Dosage: RESPIRATORY (INHALATION)
     Route: 055
     Dates: start: 20000725, end: 20000725
  3. THIAMYLAL [Suspect]
     Indication: ANAESTHESIA
     Dosage: INTRAVENOUS (NOS)
     Route: 042
     Dates: start: 20000725, end: 20000725
  4. FENTANYL CITRATE [Suspect]
     Indication: ANAESTHESIA
     Dosage: 200 UG INTRAVENOUS (NOS)
     Route: 042
     Dates: start: 20000725, end: 20000725
  5. NILVADIPINE [Concomitant]
  6. RALOXIFENE HCL [Concomitant]
  7. ACTARIT [Concomitant]
  8. NITROUS OXIDE W/ OXYGEN [Concomitant]
  9. AMBROXOL HYDROCHLORIDE [Concomitant]
  10. REBAMIPIDE [Concomitant]
  11. CANDESARTAN CILEXETIL [Concomitant]
  12. ETOZOLAM [Concomitant]
  13. ETODOLAC [Concomitant]

REACTIONS (2)
  - POST PROCEDURAL COMPLICATION [None]
  - RESPIRATORY DEPRESSION [None]
